FAERS Safety Report 7433030-6 (Version None)
Quarter: 2011Q2

REPORT INFORMATION
  Report Type: 
  Country: None (occurrence: None)
  Receive Date: 20110422
  Receipt Date: 20110418
  Transmission Date: 20111010
  Serious: Yes (Other)
  Sender: FDA-Public Use
  Company Number: US-PFIZER INC-2011037909

PATIENT
  Sex: Male
  Weight: 90.703 kg

DRUGS (11)
  1. TERAZOSIN [Concomitant]
     Dosage: 5 MG, 1X/DAY
     Route: 048
  2. LIPITOR [Suspect]
     Dosage: UNK
     Dates: end: 20110101
  3. LANTUS [Concomitant]
  4. LIPITOR [Suspect]
     Dosage: 1/2 OF 40 MG TABLET DAILY
     Route: 048
     Dates: start: 20110101, end: 20110222
  5. RAMIPRIL [Concomitant]
     Dosage: 10 MG, 1X/DAY
     Route: 048
  6. CALCIUM [Concomitant]
     Dosage: UNK
  7. ACETYLSALICYLIC ACID [Concomitant]
  8. M.V.I. [Concomitant]
  9. NOVOLOG [Concomitant]
  10. LIPITOR [Suspect]
     Indication: HYPERCHOLESTEROLAEMIA
     Dosage: 1/2 OF 40 MG TABLET DAILY
     Route: 048
     Dates: start: 20070101, end: 20090101
  11. LIPITOR [Suspect]
     Dosage: 20 MG, 1X/DAY
     Dates: start: 20110101

REACTIONS (2)
  - RASH MACULO-PAPULAR [None]
  - EXPIRED DRUG ADMINISTERED [None]
